FAERS Safety Report 17223192 (Version 3)
Quarter: 2020Q1

REPORT INFORMATION
  Report Type: Spontaneous
  Country: FR (occurrence: FR)
  Receive Date: 20200102
  Receipt Date: 20200205
  Transmission Date: 20200409
  Serious: Yes (Other)
  Sender: FDA-Public Use
  Company Number: NVSC2019FR077718

PATIENT
  Sex: Female
  Weight: 54 kg

DRUGS (6)
  1. LUTATHERA [Suspect]
     Active Substance: LUTETIUM OXODOTREOTIDE LU-177
     Dosage: UNK
     Route: 065
  2. LUTATHERA [Suspect]
     Active Substance: LUTETIUM OXODOTREOTIDE LU-177
     Indication: PANCREATIC NEUROENDOCRINE TUMOUR
     Dosage: UNK
     Route: 065
  3. VITAMIN B12 [Concomitant]
     Active Substance: CYANOCOBALAMIN
     Indication: PRODUCT USED FOR UNKNOWN INDICATION
     Dosage: 250 UG, QD  (PER DAY DURING 10-15 DAYS)
     Route: 065
  4. PIASCLEDINE [Concomitant]
     Active Substance: AVOCADO OIL\SOYBEAN OIL
     Indication: PRODUCT USED FOR UNKNOWN INDICATION
     Dosage: 300 MG, QD
     Route: 065
  5. LUTATHERA [Suspect]
     Active Substance: LUTETIUM OXODOTREOTIDE LU-177
     Dosage: 7295 MBQ
     Route: 042
     Dates: start: 20190902, end: 20190905
  6. LEVOTHYROX [Concomitant]
     Active Substance: LEVOTHYROXINE
     Indication: PRODUCT USED FOR UNKNOWN INDICATION
     Dosage: 162.5 UG, QD
     Route: 065

REACTIONS (11)
  - Cardiac murmur [Unknown]
  - Anaemia macrocytic [Unknown]
  - Lymphopenia [Unknown]
  - Thrombocytopenia [Not Recovered/Not Resolved]
  - Neutropenia [Not Recovered/Not Resolved]
  - Anaemia [Not Recovered/Not Resolved]
  - Malignant neoplasm progression [Unknown]
  - Hyperthermia [Unknown]
  - Platelet toxicity [Unknown]
  - Impaired healing [Unknown]
  - Pancreatic neuroendocrine tumour [Unknown]

NARRATIVE: CASE EVENT DATE: 20200113
